FAERS Safety Report 9637823 (Version 1)
Quarter: 2013Q4

REPORT INFORMATION
  Report Type: Report from Study
  Country: US (occurrence: US)
  Receive Date: 20131022
  Receipt Date: 20131022
  Transmission Date: 20140711
  Serious: Yes (Hospitalization, Other)
  Sender: FDA-Public Use
  Company Number: US-ELI_LILLY_AND_COMPANY-US201310003325

PATIENT
  Sex: Female

DRUGS (1)
  1. DULOXETINE HYDROCHLORIDE [Suspect]
     Indication: ANXIETY
     Dosage: 60 MG, QD
     Route: 065
     Dates: start: 2007, end: 20131002

REACTIONS (11)
  - Loss of consciousness [Unknown]
  - Blood electrolytes decreased [Unknown]
  - Suicidal ideation [Unknown]
  - Fall [Unknown]
  - Cataract [Unknown]
  - Feeling of despair [Unknown]
  - Feeling abnormal [Unknown]
  - Crying [Unknown]
  - Drug dose omission [Unknown]
  - Insomnia [Unknown]
  - Drug withdrawal syndrome [Unknown]
